FAERS Safety Report 13991540 (Version 3)
Quarter: 2017Q4

REPORT INFORMATION
  Report Type: Spontaneous
  Country: CH (occurrence: CH)
  Receive Date: 20170920
  Receipt Date: 20171002
  Transmission Date: 20180321
  Serious: Yes (Hospitalization, Other)
  Sender: FDA-Public Use
  Company Number: CH-MYLANLABS-2017M1058941

PATIENT
  Age: 26 Year
  Sex: Male
  Weight: 94 kg

DRUGS (8)
  1. DEXAMETHASON [Concomitant]
     Active Substance: DEXAMETHASONE
     Route: 048
  2. KLACID [Suspect]
     Active Substance: CLARITHROMYCIN
     Indication: HELICOBACTER GASTRITIS
     Route: 048
     Dates: start: 20170818, end: 20170827
  3. KIOVIG [Suspect]
     Active Substance: HUMAN IMMUNOGLOBULIN G
     Indication: EVANS SYNDROME
     Route: 041
     Dates: start: 20170829, end: 20170829
  4. ESOMEPRAZOLE [Suspect]
     Active Substance: ESOMEPRAZOLE
     Indication: HELICOBACTER GASTRITIS
     Route: 048
     Dates: start: 20170818, end: 20170827
  5. REVOLADE [Suspect]
     Active Substance: ELTROMBOPAG
     Indication: EVANS SYNDROME
     Dosage: 50 MG, QD
     Route: 048
     Dates: start: 20170826, end: 20170827
  6. AMOXICILLINE [Suspect]
     Active Substance: AMOXICILLIN
     Indication: HELICOBACTER GASTRITIS
     Route: 048
     Dates: start: 20170818, end: 20170827
  7. PANTOPRAZOLE [Concomitant]
     Active Substance: PANTOPRAZOLE
     Route: 048
     Dates: start: 20170805
  8. SOLU-MEDROL [Concomitant]
     Active Substance: METHYLPREDNISOLONE SODIUM SUCCINATE
     Route: 040
     Dates: start: 20170805, end: 20170805

REACTIONS (4)
  - Rash maculo-papular [Recovered/Resolved]
  - Drug reaction with eosinophilia and systemic symptoms [Recovered/Resolved]
  - Pyrexia [Recovered/Resolved]
  - Eosinophilia [Recovered/Resolved]

NARRATIVE: CASE EVENT DATE: 20170827
